FAERS Safety Report 10419906 (Version 1)
Quarter: 2014Q2

REPORT INFORMATION
  Report Type: Spontaneous
  Country: US (occurrence: None)
  Receive Date: 20140625
  Receipt Date: 20140625
  Transmission Date: 20141212
  Serious: Yes (Other)
  Sender: FDA-Public Use
  Company Number: AUR-APL-2013-07831

PATIENT
  Sex: Female

DRUGS (1)
  1. ZOLPIDEM (ZOLPIDEM) [Suspect]
     Indication: PRODUCT USED FOR UNKNOWN INDICATION
     Dosage: -STOPPED

REACTIONS (5)
  - Headache [None]
  - Abdominal pain [None]
  - Hallucination [None]
  - Drug ineffective [None]
  - Product substitution issue [None]
